FAERS Safety Report 19934475 (Version 2)
Quarter: 2022Q2

REPORT INFORMATION
  Report Type: Report from Study
  Country: EG (occurrence: EG)
  Receive Date: 20211008
  Receipt Date: 20220412
  Transmission Date: 20220721
  Serious: No
  Sender: FDA-Public Use
  Company Number: EG-BAYER-2021-195412

PATIENT
  Sex: Male

DRUGS (1)
  1. EYLEA [Suspect]
     Active Substance: AFLIBERCEPT
     Indication: Diabetic retinal oedema
     Dosage: UNK (OS - TOTAL OF 4 INJECTIONS)
     Route: 031

REACTIONS (1)
  - Inappropriate schedule of product administration [Not Recovered/Not Resolved]
